FAERS Safety Report 12465015 (Version 2)
Quarter: 2016Q2

REPORT INFORMATION
  Report Type: Spontaneous
  Country: IT (occurrence: IT)
  Receive Date: 20160614
  Receipt Date: 20160617
  Transmission Date: 20160815
  Serious: Yes (Other)
  Sender: FDA-Public Use
  Company Number: IT-UCBSA-2016022011

PATIENT
  Age: 72 Year
  Sex: Female
  Weight: 60 kg

DRUGS (2)
  1. LEVETIRACETAM. [Suspect]
     Active Substance: LEVETIRACETAM
     Dosage: 1500 MG DAILY
     Route: 048
     Dates: start: 20160513, end: 2016
  2. LEVETIRACETAM. [Suspect]
     Active Substance: LEVETIRACETAM
     Indication: EPILEPSY
     Dosage: 1000 MG DAILY
     Route: 048
     Dates: start: 20160501, end: 20160512

REACTIONS (1)
  - Thrombocytopenia [Recovering/Resolving]

NARRATIVE: CASE EVENT DATE: 20160516
